FAERS Safety Report 7241518-6 (Version None)
Quarter: 2011Q1

REPORT INFORMATION
  Report Type: 
  Country: None (occurrence: None)
  Receive Date: 20110120
  Receipt Date: 20110120
  Transmission Date: 20110831
  Serious: Yes (Other)
  Sender: FDA-Public Use
  Company Number: None

PATIENT
  Age: 47 Year
  Sex: Female
  Weight: 83.9154 kg

DRUGS (1)
  1. CETIRIZINE HCL [Suspect]
     Indication: MULTIPLE ALLERGIES

REACTIONS (3)
  - DRUG DOSE OMISSION [None]
  - DRUG DEPENDENCE [None]
  - PRURITUS GENERALISED [None]
